FAERS Safety Report 8030549-4 (Version None)
Quarter: 2011Q4

REPORT INFORMATION
  Report Type: 
  Country: None (occurrence: None)
  Receive Date: 20111130
  Receipt Date: 20110606
  Transmission Date: 20120403
  Serious: Yes (Other)
  Sender: FDA-Public Use
  Company Number: US200910005202

PATIENT
  Sex: Male
  Weight: 147.8 kg

DRUGS (12)
  1. EXENATIDE UNK STRENGTH PEN, DISPOSABLE DEVICE (EXENATIDE PEN (UNKNOWN [Concomitant]
  2. LISINOPRIL [Concomitant]
  3. NABUMETONE [Concomitant]
  4. GLYBURIDE [Concomitant]
  5. HYDROCHLOROTHIAZIDE [Concomitant]
  6. ACTOS [Concomitant]
  7. BYETTA [Suspect]
     Indication: DIABETES MELLITUS
     Dates: start: 20071101, end: 20081001
  8. METOPROLOL TARTRATE [Concomitant]
  9. GLUCOPHAGE [Concomitant]
  10. METFORMIN HCL [Concomitant]
  11. ZOCOR [Concomitant]
  12. NEURONTIN [Concomitant]

REACTIONS (1)
  - PANCREATITIS ACUTE [None]
